FAERS Safety Report 20836745 (Version 1)
Quarter: 2022Q2

REPORT INFORMATION
  Report Type: Other
  Country: None (occurrence: ES)
  Receive Date: 20220517
  Receipt Date: 20220517
  Transmission Date: 20220721
  Serious: Yes (Hospitalization)
  Sender: FDA-Public Use
  Company Number: ES-Daewoong Pharmaceutical Co., Ltd.-2128841

PATIENT
  Age: 36 Year
  Sex: Female

DRUGS (3)
  1. MEROPENEM [Suspect]
     Active Substance: MEROPENEM
  2. DENOSUMAB [Concomitant]
     Active Substance: DENOSUMAB
  3. LINEZOLID [Concomitant]
     Active Substance: LINEZOLID

REACTIONS (1)
  - Symmetrical drug-related intertriginous and flexural exanthema [Recovered/Resolved]
